FAERS Safety Report 16904480 (Version 1)
Quarter: 2019Q4

REPORT INFORMATION
  Report Type: Spontaneous
  Country: CO (occurrence: CO)
  Receive Date: 20191010
  Receipt Date: 20191010
  Transmission Date: 20200122
  Serious: Yes (Hospitalization, Other)
  Sender: FDA-Public Use
  Company Number: CO-PFIZER INC-2019434036

PATIENT
  Age: 14 Year
  Sex: Male
  Weight: 50 kg

DRUGS (1)
  1. GENOTROPIN [Suspect]
     Active Substance: SOMATROPIN
     Indication: GROWTH HORMONE DEFICIENCY
     Dosage: 1.6 MG, DAILY
     Route: 058
     Dates: start: 201906

REACTIONS (3)
  - Headache [Unknown]
  - Pituitary tumour [Unknown]
  - Stress [Unknown]

NARRATIVE: CASE EVENT DATE: 20190927
